FAERS Safety Report 8823739 (Version 1)
Quarter: 2012Q4

REPORT INFORMATION
  Report Type: 
  Country: FR (occurrence: FR)
  Receive Date: 20121003
  Receipt Date: 20121003
  Transmission Date: 20130627
  Serious: Yes (Hospitalization)
  Sender: FDA-Public Use
  Company Number: CHPA2012FR020782

PATIENT
  Age: 14 Year
  Sex: Female

DRUGS (9)
  1. SCOPODERM TTS [Suspect]
     Indication: NAUSEA
     Dosage: Unk, Unk
     Route: 062
     Dates: start: 20120411, end: 20120505
  2. RIFADINE [Suspect]
     Indication: STAPHYLOCOCCAL SEPSIS
     Dosage: 600 mg, BID
     Route: 048
     Dates: start: 20120419, end: 20120505
  3. OFLOCET [Suspect]
     Dosage: Unk, Unk
     Dates: start: 20120421
  4. LOVENOX [Suspect]
     Dosage: Unk, Unk
     Dates: start: 20120420
  5. OXACILLIN [Suspect]
     Indication: STAPHYLOCOCCAL SEPSIS
     Dosage: Unk, Unk
     Dates: start: 20120417, end: 20120421
  6. ESOMEPRAZOLE [Suspect]
     Dosage: Unk, Unk
     Dates: start: 20120405
  7. AMIKLIN [Suspect]
     Indication: STAPHYLOCOCCAL SEPSIS
     Dosage: Unk, Unk
     Dates: start: 20120416
  8. VANCOMYCIN [Suspect]
     Indication: STAPHYLOCOCCAL SEPSIS
     Dosage: Unk, Unk
     Dates: start: 20120416
  9. TARGOCID [Concomitant]
     Dosage: Unk, Unk
     Dates: start: 20120424, end: 20120504

REACTIONS (4)
  - Hyperthermia [Recovered/Resolved]
  - Staphylococcal sepsis [Unknown]
  - Off label use [Unknown]
  - Rash [Recovered/Resolved]
